FAERS Safety Report 14072783 (Version 2)
Quarter: 2017Q4

REPORT INFORMATION
  Report Type: Report from Study
  Country: CN (occurrence: CN)
  Receive Date: 20171011
  Receipt Date: 20171020
  Transmission Date: 20180321
  Serious: Yes (Death, Other)
  Sender: FDA-Public Use
  Company Number: CN-BAYER-2017-154973

PATIENT
  Age: 48 Year
  Sex: Male

DRUGS (1)
  1. STIVARGA [Suspect]
     Active Substance: REGORAFENIB
     Indication: COLORECTAL CANCER METASTATIC
     Dosage: 160 MG, QD
     Route: 048
     Dates: start: 20170804, end: 20170826

REACTIONS (6)
  - Death [Fatal]
  - Asthenia [Unknown]
  - Asthenia [Unknown]
  - Cachexia [Unknown]
  - Fatigue [Unknown]
  - Critical illness [None]

NARRATIVE: CASE EVENT DATE: 20170811
